FAERS Safety Report 20313366 (Version 1)
Quarter: 2022Q1

REPORT INFORMATION
  Report Type: Report from Study
  Country: US (occurrence: US)
  Receive Date: 20220110
  Receipt Date: 20220110
  Transmission Date: 20220424
  Serious: Yes (Other)
  Sender: FDA-Public Use
  Company Number: US-BAUSCH-BL-2021-017946

PATIENT
  Age: 79 Year
  Sex: Male

DRUGS (10)
  1. XIFAXAN [Suspect]
     Active Substance: RIFAXIMIN
     Indication: Hepatic encephalopathy
     Dosage: RAN OUT OF MEDICATION A COUPLE WEEKS AGO
     Route: 048
     Dates: start: 2015, end: 20211211
  2. MINERALS\VITAMINS [Concomitant]
     Active Substance: MINERALS\VITAMINS
     Indication: Product used for unknown indication
     Dates: start: 20200925
  3. GABAPENTIN [Concomitant]
     Active Substance: GABAPENTIN
     Indication: Product used for unknown indication
     Dosage: 1 CAPSULE BY MOUTH EVERY MORNING,1 CAPSULE EVERY EVENING AND 2 AT NIGHT
     Route: 048
  4. HYDROXYCHLOROQUINE SULFATE [Concomitant]
     Active Substance: HYDROXYCHLOROQUINE SULFATE
     Indication: Product used for unknown indication
     Route: 048
     Dates: start: 20210408
  5. METFORMIN HYDROCHLORIDE [Concomitant]
     Active Substance: METFORMIN HYDROCHLORIDE
     Indication: Product used for unknown indication
     Route: 048
     Dates: end: 20201223
  6. NYSTATIN [Concomitant]
     Active Substance: NYSTATIN
     Indication: Product used for unknown indication
     Dosage: 100000 UNIT/GM, APPLY SPARINGLY TO AFFECTED AREA(3 TIMES A DAY) EXTERNAL POWDER
     Dates: end: 20201022
  7. OMEPRAZOLE [Concomitant]
     Active Substance: OMEPRAZOLE
     Indication: Product used for unknown indication
     Dosage: CAPSULE DELAYED RELEASE.
     Route: 048
     Dates: start: 20180116
  8. ACETAMINOPHEN\OXYCODONE HYDROCHLORIDE [Concomitant]
     Active Substance: ACETAMINOPHEN\OXYCODONE HYDROCHLORIDE
     Indication: Intervertebral disc protrusion
     Dosage: 10-325 MG, 1 TAB EVERY 6 HOURS AS NEEDED
     Route: 048
     Dates: start: 20120404, end: 20210331
  9. VITAMIN D [Concomitant]
     Active Substance: VITAMIN D NOS
     Indication: Product used for unknown indication
     Dosage: 350MCG(2000 UT)
     Route: 048
     Dates: start: 20200925
  10. NOVOLOG [Concomitant]
     Active Substance: INSULIN ASPART
     Indication: Product used for unknown indication
     Dosage: 100 UNIT/ML, SUBCUTANEOUS SOLUTION PEN INJECTOR,20 UNITS 2 TIMES PER DAY
     Route: 058
     Dates: start: 20160216, end: 20200709

REACTIONS (8)
  - Diabetes mellitus [Unknown]
  - Ammonia increased [Not Recovered/Not Resolved]
  - Confusional state [Not Recovered/Not Resolved]
  - Abdominal hernia [Unknown]
  - Amnesia [Unknown]
  - Fatigue [Unknown]
  - Asthenia [Unknown]
  - Therapy interrupted [Unknown]

NARRATIVE: CASE EVENT DATE: 20210101
